FAERS Safety Report 15669009 (Version 1)
Quarter: 2018Q4

REPORT INFORMATION
  Report Type: Spontaneous
  Country: US (occurrence: US)
  Receive Date: 20181119
  Receipt Date: 20181119
  Transmission Date: 20190205
  Serious: No
  Sender: FDA-Public Use
  Company Number: None

PATIENT
  Age: 65 Year
  Sex: Female
  Weight: 103.5 kg

DRUGS (1)
  1. AMOXICILLIN AND CLAVULANATE POTASSIUM FIRCORAL SUSOENSION [Suspect]
     Active Substance: AMOXICILLIN\CLAVULANATE POTASSIUM
     Indication: BRONCHITIS
     Route: 048
     Dates: start: 20181104, end: 20181109

REACTIONS (4)
  - Oropharyngeal pain [None]
  - Product dispensing error [None]
  - Wrong technique in product usage process [None]
  - Product packaging quantity issue [None]

NARRATIVE: CASE EVENT DATE: 20181104
